FAERS Safety Report 6042178-2 (Version None)
Quarter: 2009Q1

REPORT INFORMATION
  Report Type: 
  Country: None (occurrence: None)
  Receive Date: 20090116
  Receipt Date: 20090107
  Transmission Date: 20090719
  Serious: Yes (Hospitalization, Other)
  Sender: FDA-Public Use
  Company Number: PHEH2009US00609

PATIENT
  Sex: Female

DRUGS (6)
  1. ZOMETA [Suspect]
     Indication: BREAST CANCER METASTATIC
     Dosage: 4 MG, TIW
     Route: 042
     Dates: start: 20020101, end: 20030101
  2. COUMADIN [Concomitant]
  3. ATENOLOL [Concomitant]
  4. ARIMIDEX [Concomitant]
  5. PERCOCET [Concomitant]
  6. TAMOXIFEN CITRATE [Concomitant]

REACTIONS (8)
  - BONE DISORDER [None]
  - GINGIVAL INFECTION [None]
  - GINGIVAL RECESSION [None]
  - LOOSE TOOTH [None]
  - OSTEOSCLEROSIS [None]
  - RESORPTION BONE INCREASED [None]
  - SWELLING [None]
  - TOOTH DISORDER [None]
